FAERS Safety Report 6644802-X (Version None)
Quarter: 2010Q1

REPORT INFORMATION
  Report Type: 
  Country: None (occurrence: None)
  Receive Date: 20100322
  Receipt Date: 20100310
  Transmission Date: 20100710
  Serious: Yes (Other)
  Sender: FDA-Public Use
  Company Number: IT-PFIZER INC-2010031439

PATIENT
  Age: 73 Year
  Sex: Male

DRUGS (1)
  1. ECALTA [Suspect]

REACTIONS (3)
  - HYPERTENSION [None]
  - LIP OEDEMA [None]
  - RASH [None]
